FAERS Safety Report 10493815 (Version 2)
Quarter: 2014Q4

REPORT INFORMATION
  Report Type: Spontaneous
  Country: US (occurrence: US)
  Receive Date: 20141003
  Receipt Date: 20141104
  Transmission Date: 20150528
  Serious: Yes (Hospitalization, Other)
  Sender: FDA-Public Use
  Company Number: US-AMGEN-USASP2014074818

PATIENT
  Age: 81 Year
  Sex: Male

DRUGS (1)
  1. ENBREL [Suspect]
     Active Substance: ETANERCEPT
     Indication: RHEUMATOID ARTHRITIS
     Dosage: UNK MG, QWK
     Route: 065
     Dates: start: 20000501

REACTIONS (6)
  - Asthenia [Recovered/Resolved]
  - Dyspnoea [Recovered/Resolved]
  - Heart rate decreased [Recovered/Resolved]
  - Diabetes mellitus [Not Recovered/Not Resolved]
  - Memory impairment [Not Recovered/Not Resolved]
  - Parkinsonism [Not Recovered/Not Resolved]

NARRATIVE: CASE EVENT DATE: 2012
